FAERS Safety Report 6070819-2 (Version None)
Quarter: 2009Q1

REPORT INFORMATION
  Report Type: 
  Country: None (occurrence: None)
  Receive Date: 20090209
  Receipt Date: 20080731
  Transmission Date: 20090719
  Serious: No
  Sender: FDA-Public Use
  Company Number: A0740513A

PATIENT
  Sex: Male

DRUGS (2)
  1. PAXIL [Suspect]
  2. WELLBUTRIN SR [Suspect]

REACTIONS (3)
  - DIZZINESS [None]
  - FATIGUE [None]
  - SEDATION [None]
